FAERS Safety Report 17085425 (Version 1)
Quarter: 2019Q4

REPORT INFORMATION
  Report Type: Spontaneous
  Country: US (occurrence: US)
  Receive Date: 20191128
  Receipt Date: 20191128
  Transmission Date: 20200122
  Serious: No
  Sender: FDA-Public Use
  Company Number: US-JNJFOC-20191140969

PATIENT
  Sex: Female

DRUGS (1)
  1. MENS ROGAINE EXTRA STRENGTH [Suspect]
     Active Substance: MINOXIDIL
     Indication: PRODUCT USED FOR UNKNOWN INDICATION
     Route: 065
     Dates: start: 2019

REACTIONS (5)
  - Product use issue [Unknown]
  - Off label use [Unknown]
  - Application site erythema [Unknown]
  - Application site exfoliation [Unknown]
  - Application site pruritus [Unknown]

NARRATIVE: CASE EVENT DATE: 2019
